FAERS Safety Report 4327671-2 (Version None)
Quarter: 2004Q1

REPORT INFORMATION
  Report Type: 
  Country: None (occurrence: None)
  Receive Date: 20040331
  Receipt Date: 20030211
  Transmission Date: 20041129
  Serious: Yes (Hospitalization)
  Sender: FDA-Public Use
  Company Number: US-GLAXOSMITHKLINE-A0396324A

PATIENT
  Age: 43 Year
  Sex: Female

DRUGS (2)
  1. AMERGE [Suspect]
     Indication: ILL-DEFINED DISORDER
     Dosage: 2.5MG UNKNOWN
     Route: 048
  2. TOPAMAX [Concomitant]

REACTIONS (1)
  - COLITIS ISCHAEMIC [None]
